FAERS Safety Report 11178021 (Version 1)
Quarter: 2015Q2

REPORT INFORMATION
  Report Type: Spontaneous
  Country: US (occurrence: None)
  Receive Date: 20150515
  Receipt Date: 20150515
  Transmission Date: 20150821
  Serious: Yes (Other)
  Sender: FDA-Public Use
  Company Number: 2015004558

PATIENT
  Age: 55 Year
  Sex: Female
  Weight: 79 kg

DRUGS (8)
  1. TRAZODONE [Concomitant]
     Active Substance: TRAZODONE HYDROCHLORIDE
  2. ULTRACET (PARACETAMOL, TRAMADOL HYDROCHLORIDE) [Concomitant]
  3. CIMZIA [Suspect]
     Active Substance: CERTOLIZUMAB PEGOL
     Indication: RHEUMATOID ARTHRITIS
     Route: 058
     Dates: start: 20140501, end: 20150102
  4. FOLIC ACID (FOLIC ACID) [Concomitant]
     Active Substance: FOLIC ACID
  5. HYDROCHLOROTHIAZIDE (HYDROCHLOROTHIAZIDE) [Concomitant]
     Active Substance: HYDROCHLOROTHIAZIDE
  6. METHOTREXATE (METHOTREXATE) [Concomitant]
     Active Substance: METHOTREXATE
  7. PREDNISONE (PREDNISONE ACETATE) [Concomitant]
  8. POTASSIUM (POTASSIUM CHLORIDE) [Concomitant]

REACTIONS (2)
  - Sinusitis [None]
  - Drug ineffective [None]

NARRATIVE: CASE EVENT DATE: 2014
